FAERS Safety Report 7775352-5 (Version None)
Quarter: 2011Q3

REPORT INFORMATION
  Report Type: 
  Country: None (occurrence: None)
  Receive Date: 20110923
  Receipt Date: 20110912
  Transmission Date: 20111222
  Serious: Yes (Other)
  Sender: FDA-Public Use
  Company Number: PHHY2011MX81414

PATIENT
  Sex: Female

DRUGS (4)
  1. DIOVAN [Suspect]
     Indication: HYPERTENSION
     Dosage: 2 DF, PER DAY
     Dates: start: 20060901
  2. AGGRENOX [Concomitant]
     Dosage: UNK
     Dates: start: 20080901
  3. DIOVAN [Suspect]
     Dosage: 1 DF, PER DAY
     Dates: start: 20090901
  4. NORVASC [Concomitant]
     Dosage: UNK
     Dates: start: 20080901

REACTIONS (2)
  - CHEST DISCOMFORT [None]
  - EMBOLISM [None]
